FAERS Safety Report 21144176 (Version 1)
Quarter: 2022Q3

REPORT INFORMATION
  Report Type: Spontaneous
  Country: US (occurrence: US)
  Receive Date: 20220728
  Receipt Date: 20220728
  Transmission Date: 20221027
  Serious: Yes (Other)
  Sender: FDA-Public Use
  Company Number: US-PFIZER INC-202201005944

PATIENT
  Age: 56 Year
  Sex: Female
  Weight: 67.59 kg

DRUGS (1)
  1. DEPO-ESTRADIOL [Suspect]
     Active Substance: ESTRADIOL CYPIONATE
     Indication: Hormone replacement therapy
     Dosage: UNK, EVERY 3 WEEKS (1.5 CCS EVERY 3 WEEKS.)
     Dates: end: 20220613

REACTIONS (2)
  - Hysterectomy [Unknown]
  - Asthenia [Unknown]
